FAERS Safety Report 24246151 (Version 1)
Quarter: 2024Q3

REPORT INFORMATION
  Report Type: Spontaneous
  Country: AU (occurrence: AU)
  Receive Date: 20240824
  Receipt Date: 20240824
  Transmission Date: 20241017
  Serious: Yes (Other)
  Sender: BOEHRINGER INGELHEIM
  Company Number: AU-BoehringerIngelheim-2024-BI-034522

PATIENT
  Age: 82 Year
  Sex: Female
  Weight: 64.5 kg

DRUGS (1)
  1. LINAGLIPTIN [Suspect]
     Active Substance: LINAGLIPTIN
     Indication: Type 2 diabetes mellitus
     Dates: start: 20240216, end: 20240530

REACTIONS (4)
  - Pancreatitis [Recovered/Resolved with Sequelae]
  - Pancreatic failure [Recovered/Resolved with Sequelae]
  - Hyperglycaemia [Recovered/Resolved with Sequelae]
  - Blood insulin decreased [Recovered/Resolved with Sequelae]

NARRATIVE: CASE EVENT DATE: 20240502
